FAERS Safety Report 5420346-8 (Version None)
Quarter: 2007Q3

REPORT INFORMATION
  Report Type: 
  Country: None (occurrence: None)
  Receive Date: 20070816
  Receipt Date: 20070809
  Transmission Date: 20080115
  Serious: Yes (Death, Hospitalization)
  Sender: FDA-Public Use
  Company Number: 163-21880-07080501

PATIENT
  Age: 55 Year
  Sex: Male

DRUGS (2)
  1. REVLIMID [Suspect]
     Indication: CHRONIC LYMPHOCYTIC LEUKAEMIA REFRACTORY
     Dosage: 25 MG, DAILY, FOR 21 DAYS OF A 28 DAY CYCLE, ORAL
     Route: 048
  2. PREDNISONE TAB [Suspect]
     Indication: PROPHYLAXIS
     Dosage: 20 MGL, DAILY, ORAL
     Route: 048

REACTIONS (16)
  - ABDOMINAL PAIN [None]
  - ACUTE RESPIRATORY FAILURE [None]
  - BACK PAIN [None]
  - BLOOD LACTATE DEHYDROGENASE [None]
  - DRUG DOSE OMISSION [None]
  - DRUG TOXICITY [None]
  - GENERAL PHYSICAL HEALTH DETERIORATION [None]
  - HYPERPHOSPHATAEMIA [None]
  - HYPERURICAEMIA [None]
  - HYPOXIA [None]
  - LYMPHOCYTOSIS [None]
  - MENTAL STATUS CHANGES [None]
  - RENAL FAILURE ACUTE [None]
  - TUMOUR FLARE [None]
  - TUMOUR LYSIS SYNDROME [None]
  - WHITE BLOOD CELL COUNT DECREASED [None]
